FAERS Safety Report 8451036-5 (Version None)
Quarter: 2012Q2

REPORT INFORMATION
  Report Type: 
  Country: None (occurrence: None)
  Receive Date: 20120620
  Receipt Date: 20120620
  Transmission Date: 20120825
  Serious: Yes (Death)
  Sender: FDA-Public Use
  Company Number: US-PFIZER INC-2004235718US

PATIENT
  Age: 56 Year

DRUGS (3)
  1. CALAN [Suspect]
  2. LOSARTAN POTASSIUM [Suspect]
  3. CLONAZEPAM [Suspect]

REACTIONS (2)
  - COMPLETED SUICIDE [None]
  - INTENTIONAL OVERDOSE [None]
